FAERS Safety Report 5343976-0 (Version None)
Quarter: 2007Q2

REPORT INFORMATION
  Report Type: 
  Country: None (occurrence: None)
  Receive Date: 20070531
  Receipt Date: 20070531
  Transmission Date: 20071010
  Serious: Yes (Life-Threatening, Hospitalization)
  Sender: FDA-Public Use
  Company Number: None

PATIENT
  Age: 82 Year
  Sex: Female
  Weight: 72.5755 kg

DRUGS (1)
  1. ALLOPURINOL [Suspect]
     Indication: GOUT
     Dosage: 300MG 1XDAY PO
     Route: 048

REACTIONS (7)
  - ANOREXIA [None]
  - DEHYDRATION [None]
  - INFECTION [None]
  - NERVOUSNESS [None]
  - RASH PRURITIC [None]
  - THIRST [None]
  - TREMOR [None]
